FAERS Safety Report 6470239-2 (Version None)
Quarter: 2009Q4

REPORT INFORMATION
  Report Type: 
  Country: None (occurrence: None)
  Receive Date: 20091203
  Receipt Date: 20080701
  Transmission Date: 20100525
  Serious: Yes (Other)
  Sender: FDA-Public Use
  Company Number: JP-ELI_LILLY_AND_COMPANY-JP200711006449

PATIENT
  Sex: Male
  Weight: 66 kg

DRUGS (10)
  1. PEMETREXED [Suspect]
     Indication: PLEURAL MESOTHELIOMA MALIGNANT
     Dosage: 500 MG/M2, OTHER
     Route: 042
     Dates: start: 20070222, end: 20070405
  2. CISPLATIN [Suspect]
     Indication: PLEURAL MESOTHELIOMA MALIGNANT
     Dosage: 60 MG/M2, OTHER
     Route: 042
     Dates: start: 20070222, end: 20070405
  3. FOLIAMIN [Concomitant]
     Indication: SUPPLEMENTATION THERAPY
     Route: 048
     Dates: start: 20070213, end: 20070509
  4. METHYCOBAL [Concomitant]
     Indication: SUPPLEMENTATION THERAPY
     Dosage: 2 ML, DAILY (1/D)
     Route: 030
     Dates: start: 20070213, end: 20070213
  5. METHYCOBAL [Concomitant]
     Dosage: 1 MG, OTHER
     Route: 030
     Dates: start: 20070415, end: 20070415
  6. NU-LOTAN [Concomitant]
     Indication: HYPERTENSION
     Dosage: 50 MG, DAILY (1/D)
     Route: 048
     Dates: end: 20070617
  7. MEVALOTIN [Concomitant]
     Indication: HYPERLIPIDAEMIA
     Dosage: 5 MG, DAILY (1/D)
     Route: 048
     Dates: end: 20070617
  8. URSO 250 [Concomitant]
     Indication: HEPATIC STEATOSIS
     Dosage: 300 MG, DAILY (1/D)
     Route: 048
     Dates: end: 20070207
  9. DECADRON [Concomitant]
     Indication: PROPHYLAXIS
     Dosage: 8 MG, DAILY (1/D)
     Route: 042
     Dates: start: 20070222, end: 20070405
  10. ZOFRAN [Concomitant]
     Indication: PROPHYLAXIS
     Dosage: 4 MG, DAILY (1/D)
     Route: 042
     Dates: start: 20070222, end: 20070405

REACTIONS (1)
  - DIABETES MELLITUS [None]
